FAERS Safety Report 7941610-4 (Version None)
Quarter: 2011Q4

REPORT INFORMATION
  Report Type: 
  Country: None (occurrence: None)
  Receive Date: 20111128
  Receipt Date: 20111118
  Transmission Date: 20120403
  Serious: Yes (Hospitalization)
  Sender: FDA-Public Use
  Company Number: TR-ABBOTT-11P-161-0863561-00

PATIENT
  Sex: Male
  Weight: 94 kg

DRUGS (5)
  1. CACO3 [Concomitant]
     Indication: PRODUCT USED FOR UNKNOWN INDICATION
     Route: 042
  2. ESA [Concomitant]
     Indication: PRODUCT USED FOR UNKNOWN INDICATION
     Dates: end: 20110818
  3. IRON DEX [Concomitant]
     Indication: PRODUCT USED FOR UNKNOWN INDICATION
     Dates: end: 20110818
  4. ZEMPLAR [Suspect]
     Indication: RENAL OSTEODYSTROPHY
     Dosage: 1 ML, 10MG EVERY OTHER DAY
     Route: 042
     Dates: start: 20110718, end: 20110818
  5. EPOGEN [Concomitant]
     Indication: PRODUCT USED FOR UNKNOWN INDICATION
     Route: 042

REACTIONS (1)
  - RENAL FAILURE CHRONIC [None]
